FAERS Safety Report 6292228-3 (Version None)
Quarter: 2009Q3

REPORT INFORMATION
  Report Type: 
  Country: None (occurrence: None)
  Receive Date: 20090731
  Receipt Date: 20090722
  Transmission Date: 20100115
  Serious: Yes (Other)
  Sender: FDA-Public Use
  Company Number: PHHY2009GB30803

PATIENT
  Age: 44 Year
  Sex: Male
  Weight: 62 kg

DRUGS (4)
  1. TEGRETOL [Suspect]
     Dosage: 600 MG, QD
     Route: 048
  2. LOPERAMIDE HYDROCHLORIDE [Interacting]
     Dosage: 1 DF, PRN
  3. KEPPRA [Interacting]
     Dosage: 625 MG, UNK
     Route: 048
  4. ZONEGRAN [Interacting]
     Indication: EPILEPSY
     Dosage: 25 MG, QD
     Route: 048
     Dates: start: 20090514, end: 20090614

REACTIONS (4)
  - DIARRHOEA [None]
  - DRUG INTERACTION [None]
  - GRAND MAL CONVULSION [None]
  - PARAESTHESIA [None]
